FAERS Safety Report 6509209-4 (Version None)
Quarter: 2009Q4

REPORT INFORMATION
  Report Type: 
  Country: None (occurrence: None)
  Receive Date: 20091221
  Receipt Date: 20090930
  Transmission Date: 20100525
  Serious: No
  Sender: FDA-Public Use
  Company Number: US-TYCO HEALTHCARE/MALLINCKRODT-T200901816

PATIENT
  Age: 60 Year
  Sex: Female

DRUGS (6)
  1. ULTRA-TECHNEKOW [Suspect]
     Indication: CARDIAC STRESS TEST
     Dosage: 10.2 MCI, SINGLE (RESTING DOSE)
     Route: 042
     Dates: start: 20090930, end: 20090930
  2. ULTRA-TECHNEKOW [Suspect]
     Dosage: 33.3 MCI, SINGLE (STRESS DOSE)
     Route: 042
     Dates: start: 20090930, end: 20090930
  3. TECHNETIUM TC 99M SESTAMIBI [Suspect]
     Indication: CARDIAC STRESS TEST
     Dosage: UNK MCI, SINGLE
     Route: 042
     Dates: start: 20090930, end: 20090930
  4. TECHNETIUM TC 99M SESTAMIBI [Suspect]
     Dosage: UNK
     Route: 042
     Dates: start: 20090930, end: 20090930
  5. NORVASC [Concomitant]
  6. ASPIRIN [Concomitant]

REACTIONS (1)
  - URTICARIA [None]
